FAERS Safety Report 7830460-5 (Version None)
Quarter: 2011Q4

REPORT INFORMATION
  Report Type: 
  Country: None (occurrence: None)
  Receive Date: 20111021
  Receipt Date: 20111013
  Transmission Date: 20120403
  Serious: Yes (Hospitalization)
  Sender: FDA-Public Use
  Company Number: US-MYLANLABS-2011S1021313

PATIENT
  Age: 51 Year
  Sex: Male

DRUGS (2)
  1. AZATHIOPRINE [Suspect]
     Indication: CROHN'S DISEASE
     Route: 048
     Dates: start: 20110922, end: 20111007
  2. PREDNISONE [Concomitant]
     Indication: CROHN'S DISEASE
     Route: 048
     Dates: start: 20110910

REACTIONS (8)
  - VOMITING [None]
  - PYREXIA [None]
  - NAUSEA [None]
  - CHILLS [None]
  - HEADACHE [None]
  - ABDOMINAL PAIN [None]
  - BACK PAIN [None]
  - NECK PAIN [None]
